FAERS Safety Report 25660984 (Version 1)
Quarter: 2025Q3

REPORT INFORMATION
  Report Type: Spontaneous
  Country: US (occurrence: US)
  Receive Date: 20250808
  Receipt Date: 20250808
  Transmission Date: 20251020
  Serious: Yes (Other)
  Sender: JOHNSON AND JOHNSON
  Company Number: US-JNJFOC-20250738548

PATIENT

DRUGS (1)
  1. CARVYKTI [Suspect]
     Active Substance: CILTACABTAGENE AUTOLEUCEL
     Indication: Product used for unknown indication
     Route: 065

REACTIONS (20)
  - Optic neuritis [Unknown]
  - Iridocyclitis [Unknown]
  - Optic neuritis [Unknown]
  - Noninfective chorioretinitis [Unknown]
  - Papilloedema [Unknown]
  - Ophthalmic herpes zoster [Unknown]
  - Vitreous opacities [Unknown]
  - Dry eye [Unknown]
  - Diplopia [Unknown]
  - Night blindness [Unknown]
  - Vitamin A deficiency related corneal disorder [Unknown]
  - Vitamin A deficiency related conjunctival disorder [Unknown]
  - Vitamin A deficiency related corneal disorder [Unknown]
  - Vitamin A deficiency related corneal disorder [Unknown]
  - Pupillary disorder [Unknown]
  - Ocular discomfort [Unknown]
  - Visual impairment [Unknown]
  - Conjunctivitis [Unknown]
  - Keratitis [Unknown]
  - Vitamin A deficiency eye disorder [Unknown]
